FAERS Safety Report 26145298 (Version 1)
Quarter: 2025Q4

REPORT INFORMATION
  Report Type: Spontaneous
  Country: US (occurrence: US)
  Receive Date: 20251211
  Receipt Date: 20251211
  Transmission Date: 20260118
  Serious: No
  Sender: BIOVITRUM
  Company Number: US-BIOVITRUM-2025-US-017248

PATIENT
  Age: 64 Year
  Sex: Male

DRUGS (1)
  1. VONJO [Suspect]
     Active Substance: PACRITINIB
     Indication: Myelofibrosis
     Dosage: TAKE 2 CAPSULES BY MOUTH TWICE DAILY
     Route: 048
     Dates: start: 20251126

REACTIONS (1)
  - Diarrhoea [Unknown]
